FAERS Safety Report 11785621 (Version 1)
Quarter: 2015Q4

REPORT INFORMATION
  Report Type: Spontaneous
  Country: US (occurrence: None)
  Receive Date: 20151125
  Receipt Date: 20151125
  Transmission Date: 20160305
  Serious: No
  Sender: FDA-Public Use
  Company Number: None

PATIENT
  Age: 65 Year
  Sex: Female
  Weight: 77.11 kg

DRUGS (5)
  1. CRESTOR [Concomitant]
     Active Substance: ROSUVASTATIN CALCIUM
  2. TYLENOL ARTHRITIS PAIN [Concomitant]
     Active Substance: ACETAMINOPHEN
  3. VALACYCLOVIR 500 MG TEVA [Suspect]
     Active Substance: VALACYCLOVIR HYDROCHLORIDE
     Indication: HERPES SIMPLEX
     Dosage: ONE PILL ONE PR DAY ORAL
     Route: 048
     Dates: start: 20151004
  4. ZETIA [Concomitant]
     Active Substance: EZETIMIBE
  5. ESTRACE [Concomitant]
     Active Substance: ESTRADIOL

REACTIONS (3)
  - Product quality issue [None]
  - Herpes virus infection [None]
  - Product substitution issue [None]

NARRATIVE: CASE EVENT DATE: 201510
